FAERS Safety Report 6329579-X (Version None)
Quarter: 2009Q3

REPORT INFORMATION
  Report Type: 
  Country: None (occurrence: None)
  Receive Date: 20090826
  Receipt Date: 20090818
  Transmission Date: 20100115
  Serious: Yes (Hospitalization, Other)
  Sender: FDA-Public Use
  Company Number: BR-AVENTIS-200919155GDDC

PATIENT
  Age: 55 Year
  Sex: Male
  Weight: 79 kg

DRUGS (9)
  1. DAONIL [Suspect]
     Indication: BLOOD GLUCOSE INCREASED
     Dosage: DOSE QUANTITY: 2
     Route: 048
     Dates: start: 20010101, end: 20080101
  2. DAONIL [Suspect]
     Dosage: DOSE QUANTITY: 1
     Route: 048
     Dates: start: 20080101, end: 20090801
  3. DAONIL [Suspect]
     Dosage: DOSE QUANTITY: 2
     Route: 048
     Dates: start: 20090801
  4. DIAZEPAM [Concomitant]
     Indication: NERVOUSNESS
     Route: 048
  5. ENALAPRIL MALEATE [Concomitant]
     Indication: BLOOD PRESSURE ABNORMAL
     Route: 048
     Dates: start: 20010101
  6. FLUOXETINE [Concomitant]
     Indication: DEPRESSION
     Route: 048
     Dates: start: 20010101
  7. NPH INSULIN [Concomitant]
     Indication: BLOOD GLUCOSE INCREASED
     Dosage: DOSE: 18 + 10
     Route: 058
     Dates: start: 20080601
  8. METFORMIN HCL [Concomitant]
     Indication: BLOOD GLUCOSE INCREASED
     Dosage: DOSE QUANTITY: 1
     Route: 048
     Dates: start: 20010101
  9. SIMVASTATIN [Concomitant]
     Indication: BLOOD CHOLESTEROL ABNORMAL
     Route: 048
     Dates: start: 20010101

REACTIONS (3)
  - HEADACHE [None]
  - MIGRAINE WITH AURA [None]
  - VISUAL IMPAIRMENT [None]
